FAERS Safety Report 6221289-2 (Version None)
Quarter: 2009Q2

REPORT INFORMATION
  Report Type: 
  Country: None (occurrence: None)
  Receive Date: 20090610
  Receipt Date: 20090529
  Transmission Date: 20091009
  Serious: Yes (Hospitalization, Other)
  Sender: FDA-Public Use
  Company Number: JP-BRISTOL-MYERS SQUIBB COMPANY-14532147

PATIENT
  Age: 65 Year
  Sex: Male
  Weight: 66 kg

DRUGS (8)
  1. ABILIFY [Suspect]
     Indication: SCHIZOPHRENIA
     Dosage: 07SEP-20SEP(6MG);21SEP-30SEP(12MG/D;10DAYS);01OCT-14OCT(18MG/D;14DAYS);15OCT-05NOV07(24MG/D;22D).
     Route: 048
     Dates: start: 20070907, end: 20071107
  2. LEVOTOMIN [Concomitant]
     Dates: end: 20071020
  3. LOCHOL [Concomitant]
  4. AMOBAN [Concomitant]
     Dosage: FORM TABS.
     Dates: start: 20040617
  5. RISPERDAL [Concomitant]
     Dosage: TABLET FORM
     Dates: start: 20070524, end: 20071014
  6. HIRNAMIN [Concomitant]
     Dates: end: 20071107
  7. LENDORMIN [Concomitant]
     Dosage: TABLET FORM
     Dates: start: 20071015, end: 20071107
  8. ARTANE [Concomitant]
     Dosage: TABLET FORM
     Dates: end: 20071029

REACTIONS (14)
  - ABNORMAL BEHAVIOUR [None]
  - AGITATION [None]
  - ANXIETY [None]
  - DELUSION [None]
  - FEELING ABNORMAL [None]
  - HALLUCINATION, AUDITORY [None]
  - HYPOPHAGIA [None]
  - IMPATIENCE [None]
  - INSOMNIA [None]
  - IRRITABILITY [None]
  - OBSESSIVE-COMPULSIVE DISORDER [None]
  - PSYCHIATRIC SYMPTOM [None]
  - SOMNOLENCE [None]
  - THINKING ABNORMAL [None]
